FAERS Safety Report 8544121-0 (Version None)
Quarter: 2012Q3

REPORT INFORMATION
  Report Type: 
  Country: None (occurrence: None)
  Receive Date: 20120727
  Receipt Date: 20120720
  Transmission Date: 20120928
  Serious: Yes (Other)
  Sender: FDA-Public Use
  Company Number: JP-B.I. PHARMACEUTICALS,INC./RIDGEFIELD-2012-EU-03749GD

PATIENT
  Age: 85 Year
  Sex: Male

DRUGS (1)
  1. DABIGATRAN [Suspect]
     Indication: ATRIAL FIBRILLATION
     Route: 065
     Dates: start: 20111108

REACTIONS (2)
  - PULMONARY ALVEOLAR HAEMORRHAGE [None]
  - INTERSTITIAL LUNG DISEASE [None]
